FAERS Safety Report 21712720 (Version 2)
Quarter: 2022Q4

REPORT INFORMATION
  Report Type: Report from Study
  Country: US (occurrence: US)
  Receive Date: 20221212
  Receipt Date: 20221221
  Transmission Date: 20230113
  Serious: Yes (Other)
  Sender: FDA-Public Use
  Company Number: US-SA-SAC20221208000469

PATIENT
  Age: 60 Year
  Sex: Male
  Weight: 70.3 kg

DRUGS (11)
  1. ELIGLUSTAT [Suspect]
     Active Substance: ELIGLUSTAT
     Indication: Gaucher^s disease
     Dosage: UNK UNK, Q12H
     Route: 048
     Dates: start: 20150129
  2. ELIGLUSTAT [Suspect]
     Active Substance: ELIGLUSTAT
     Dosage: 84 MG, BID
     Route: 048
     Dates: start: 20171217
  3. DULOXETINE HYDROCHLORIDE [Suspect]
     Active Substance: DULOXETINE HYDROCHLORIDE
     Indication: Depression
  4. CYMBALTA [Concomitant]
     Active Substance: DULOXETINE HYDROCHLORIDE
  5. LEXAPRO [Concomitant]
     Active Substance: ESCITALOPRAM OXALATE
  6. AVODART [Concomitant]
     Active Substance: DUTASTERIDE
  7. LOSARTAN [Concomitant]
     Active Substance: LOSARTAN
  8. LANTUS [Concomitant]
     Active Substance: INSULIN GLARGINE
  9. SIMVASTATIN [Concomitant]
     Active Substance: SIMVASTATIN
  10. GEMFIBROZIL [Concomitant]
     Active Substance: GEMFIBROZIL
  11. NOVOLOG [Concomitant]
     Active Substance: INSULIN ASPART

REACTIONS (3)
  - Hernia repair [Recovered/Resolved]
  - Tumour excision [Recovered/Resolved]
  - Dizziness postural [Recovered/Resolved]

NARRATIVE: CASE EVENT DATE: 20220101
